FAERS Safety Report 18625292 (Version 2)
Quarter: 2020Q4

REPORT INFORMATION
  Report Type: Spontaneous
  Country: AR (occurrence: AR)
  Receive Date: 20201217
  Receipt Date: 20201218
  Transmission Date: 20210114
  Serious: Yes (Hospitalization, Other)
  Sender: FDA-Public Use
  Company Number: AR-ALVOGEN-2020-ALVOGEN-115470

PATIENT
  Age: 10 Day
  Sex: Female

DRUGS (4)
  1. FLECAINIDE [Suspect]
     Active Substance: FLECAINIDE
     Indication: SUPRAVENTRICULAR TACHYCARDIA
     Dosage: 60 MG/M2/DAY
     Route: 048
  2. PROPRANOLOL [Suspect]
     Active Substance: PROPRANOLOL HYDROCHLORIDE
     Indication: SUPRAVENTRICULAR TACHYCARDIA
     Route: 048
  3. AMIODARONE [Concomitant]
     Active Substance: AMIODARONE
     Indication: SUPRAVENTRICULAR TACHYCARDIA
     Route: 042
  4. ADENOSINE. [Concomitant]
     Active Substance: ADENOSINE
     Indication: SUPRAVENTRICULAR TACHYCARDIA

REACTIONS (6)
  - Electrocardiogram QRS complex prolonged [Recovered/Resolved]
  - Mitral valve incompetence [Unknown]
  - Left ventricular dysfunction [Recovered/Resolved]
  - Bundle branch block left [Unknown]
  - Tachycardia induced cardiomyopathy [Unknown]
  - Ventricular dyssynchrony [Unknown]
